FAERS Safety Report 12223060 (Version 4)
Quarter: 2016Q2

REPORT INFORMATION
  Report Type: Spontaneous
  Country: US (occurrence: US)
  Receive Date: 20160330
  Receipt Date: 20160526
  Transmission Date: 20160815
  Serious: Yes (Other)
  Sender: FDA-Public Use
  Company Number: US-BAYER-2016-058672

PATIENT
  Age: 51 Year
  Sex: Female

DRUGS (1)
  1. MIRENA [Suspect]
     Active Substance: LEVONORGESTREL
     Indication: MENORRHAGIA
     Dosage: 20 MCG/24HR, CONT
     Route: 015
     Dates: start: 20160323, end: 20160323

REACTIONS (4)
  - Psychogenic seizure [None]
  - Device difficult to use [None]
  - Syncope [None]
  - Complication of device insertion [None]

NARRATIVE: CASE EVENT DATE: 20160323
